FAERS Safety Report 6152235-8 (Version None)
Quarter: 2009Q2

REPORT INFORMATION
  Report Type: 
  Country: None (occurrence: None)
  Receive Date: 20090410
  Receipt Date: 20090327
  Transmission Date: 20091009
  Serious: Yes (Hospitalization)
  Sender: FDA-Public Use
  Company Number: FR-GENENTECH-276366

PATIENT
  Sex: Female

DRUGS (7)
  1. BEVACIZUMAB [Suspect]
     Indication: NEOPLASM MALIGNANT
     Dosage: 600 MG, Q3W
     Route: 042
     Dates: start: 20070917, end: 20081211
  2. BEVACIZUMAB [Suspect]
     Dosage: UNK
     Dates: start: 20090119
  3. FLUOROURACIL [Suspect]
     Indication: NEOPLASM MALIGNANT
     Dosage: 2750 MG, Q6W
     Route: 042
     Dates: start: 20070917, end: 20081121
  4. FLUOROURACIL [Suspect]
     Dosage: UNK
     Dates: start: 20090119
  5. STREPTOZOCIN [Suspect]
     Indication: NEOPLASM MALIGNANT
     Dosage: 2300 MG, Q6W
     Route: 042
     Dates: start: 20070917, end: 20081121
  6. STREPTOZOCIN [Suspect]
     Dosage: UNK
     Dates: start: 20090119
  7. VANCOMYCINE [Concomitant]
     Indication: DRUG USE FOR UNKNOWN INDICATION
     Dosage: UNK
     Dates: start: 20080108, end: 20090112

REACTIONS (3)
  - FEBRILE NEUTROPENIA [None]
  - INFLUENZA LIKE ILLNESS [None]
  - PLEURAL EFFUSION [None]
